FAERS Safety Report 20956209 (Version 3)
Quarter: 2023Q2

REPORT INFORMATION
  Report Type: Report from Study
  Country: US (occurrence: US)
  Receive Date: 20220614
  Receipt Date: 20230530
  Transmission Date: 20230721
  Serious: No
  Sender: FDA-Public Use
  Company Number: US-KYOWAKIRIN-2022BKK008941

PATIENT

DRUGS (6)
  1. CRYSVITA [Suspect]
     Active Substance: BUROSUMAB-TWZA
     Indication: Hereditary hypophosphataemic rickets
     Dosage: 1X/2 WEEKS (Q2 WEEK )
     Route: 058
  2. CRYSVITA [Suspect]
     Active Substance: BUROSUMAB-TWZA
     Dosage: 50 MG, EVERY 4 WEEKS
     Route: 058
     Dates: start: 20181002
  3. CRYSVITA [Suspect]
     Active Substance: BUROSUMAB-TWZA
     Dosage: 50 MG, 1X/4 WEEKS
     Route: 058
     Dates: start: 20181002
  4. CRYSVITA [Suspect]
     Active Substance: BUROSUMAB-TWZA
     Indication: Hereditary hypophosphataemic rickets
     Dosage: 1X/2 WEEKS (Q2 WEEK )
     Route: 058
  5. CRYSVITA [Suspect]
     Active Substance: BUROSUMAB-TWZA
     Dosage: 50 MG, EVERY 4 WEEKS
     Route: 058
     Dates: start: 20181002
  6. CRYSVITA [Suspect]
     Active Substance: BUROSUMAB-TWZA
     Dosage: 50 MG, 1X/4 WEEKS
     Route: 058
     Dates: start: 20181002

REACTIONS (6)
  - Bone pain [Unknown]
  - Soft tissue injury [Unknown]
  - Blood phosphorus decreased [Unknown]
  - Gait disturbance [Unknown]
  - Menstruation irregular [Unknown]
  - Off label use [Unknown]

NARRATIVE: CASE EVENT DATE: 20230314
